FAERS Safety Report 9809980 (Version 2)
Quarter: 2014Q4

REPORT INFORMATION
  Report Type: Spontaneous
  Country: US (occurrence: US)
  Receive Date: 20140110
  Receipt Date: 20141114
  Transmission Date: 20150529
  Serious: Yes (Hospitalization, Other)
  Sender: FDA-Public Use
  Company Number: US-SANOFI-AVENTIS-2013SA078260

PATIENT
  Age: 88 Year
  Sex: Female

DRUGS (4)
  1. PLAVIX [Suspect]
     Active Substance: CLOPIDOGREL BISULFATE
     Indication: STENT PLACEMENT
     Route: 065
     Dates: start: 20070705, end: 20100829
  2. ASPIRIN. [Concomitant]
     Active Substance: ASPIRIN
  3. WARFARIN [Concomitant]
     Active Substance: WARFARIN
     Dates: start: 20110921
  4. ASPIRIN. [Concomitant]
     Active Substance: ASPIRIN
     Route: 048

REACTIONS (8)
  - Mallory-Weiss syndrome [Unknown]
  - Visual impairment [Unknown]
  - Decreased appetite [Unknown]
  - Eye discharge [Unknown]
  - Blood urine present [Unknown]
  - Gastrointestinal haemorrhage [Not Recovered/Not Resolved]
  - Respiratory arrest [Unknown]
  - Blindness [Unknown]

NARRATIVE: CASE EVENT DATE: 20100829
